FAERS Safety Report 5140830-4 (Version None)
Quarter: 2006Q4

REPORT INFORMATION
  Report Type: 
  Country: None (occurrence: None)
  Receive Date: 20061031
  Receipt Date: 20060928
  Transmission Date: 20070319
  Serious: Yes (Other)
  Sender: FDA-Public Use
  Company Number: NL-MERCK-0610NLD00007

PATIENT
  Age: 39 Year
  Sex: Female

DRUGS (3)
  1. MAXALT [Suspect]
     Indication: MIGRAINE
     Route: 048
     Dates: start: 20060920, end: 20060920
  2. MAXALT [Suspect]
     Route: 048
     Dates: start: 20060921, end: 20060921
  3. FROVATRIPTAN [Concomitant]
     Route: 065
     Dates: start: 20060920, end: 20060921

REACTIONS (2)
  - ABORTION SPONTANEOUS [None]
  - DRUG EXPOSURE DURING PREGNANCY [None]
